FAERS Safety Report 24213706 (Version 6)
Quarter: 2024Q4

REPORT INFORMATION
  Report Type: Spontaneous
  Country: US (occurrence: US)
  Receive Date: 20240815
  Receipt Date: 20241219
  Transmission Date: 20250115
  Serious: No
  Sender: PFIZER
  Company Number: US-PFIZER INC-202400214444

PATIENT
  Age: 53 Year
  Sex: Female

DRUGS (3)
  1. CIBINQO [Suspect]
     Active Substance: ABROCITINIB
     Indication: Dermatitis atopic
     Dosage: 100 MG
  2. CIBINQO [Suspect]
     Active Substance: ABROCITINIB
     Dosage: 100 MG, ALTERNATE DAY
  3. CIBINQO [Suspect]
     Active Substance: ABROCITINIB
     Dosage: 100 MG
     Route: 048

REACTIONS (7)
  - Headache [Unknown]
  - Abdominal discomfort [Unknown]
  - Somnolence [Unknown]
  - Feeling abnormal [Unknown]
  - Abnormal dreams [Unknown]
  - Product dose omission issue [Unknown]
  - Intentional product misuse [Unknown]
